FAERS Safety Report 19702743 (Version 2)
Quarter: 2021Q3

REPORT INFORMATION
  Report Type: Spontaneous
  Country: DE (occurrence: DE)
  Receive Date: 20210816
  Receipt Date: 20210820
  Transmission Date: 20211014
  Serious: No
  Sender: FDA-Public Use
  Company Number: DE-SA-2021SA262667

PATIENT
  Age: 89 Year
  Sex: Male

DRUGS (2)
  1. TOUJEO DOUBLESTAR [Suspect]
     Active Substance: INSULIN GLARGINE
     Dosage: 9 IU, QD (IN MORNING )
     Route: 065
  2. TOUJEO DOUBLESTAR [Suspect]
     Active Substance: INSULIN GLARGINE
     Dosage: 18 IU, QD
     Route: 065

REACTIONS (1)
  - Off label use [Unknown]
